FAERS Safety Report 6536992-4 (Version None)
Quarter: 2010Q1

REPORT INFORMATION
  Report Type: 
  Country: None (occurrence: None)
  Receive Date: 20100107
  Receipt Date: 20091228
  Transmission Date: 20100710
  Serious: Yes (Other)
  Sender: FDA-Public Use
  Company Number: 020626016A

PATIENT
  Sex: Female

DRUGS (2)
  1. SOFTSOAP BODY WASH NUTRI-SERUM OMEGAS 3+6 [Suspect]
     Dosage: TOPICAL
     Route: 061
  2. ADVIL [Concomitant]

REACTIONS (10)
  - DYSPNOEA [None]
  - EYE IRRITATION [None]
  - EYE PRURITUS [None]
  - FACE OEDEMA [None]
  - INSOMNIA [None]
  - LIP SWELLING [None]
  - PARAESTHESIA [None]
  - SNEEZING [None]
  - URTICARIA [None]
  - WHEEZING [None]
